FAERS Safety Report 9359551 (Version 1)
Quarter: 2013Q2

REPORT INFORMATION
  Report Type: Spontaneous
  Country: US (occurrence: US)
  Receive Date: 20130620
  Receipt Date: 20130620
  Transmission Date: 20140414
  Serious: No
  Sender: FDA-Public Use
  Company Number: US-US-EMD SERONO, INC.-7169299

PATIENT
  Sex: Female

DRUGS (1)
  1. REBIF [Suspect]
     Indication: PRODUCT USED FOR UNKNOWN INDICATION
     Route: 058
     Dates: start: 20051024

REACTIONS (5)
  - Muscle atrophy [Not Recovered/Not Resolved]
  - Activities of daily living impaired [Unknown]
  - Local swelling [Unknown]
  - Weight increased [Not Recovered/Not Resolved]
  - Injection site bruising [Unknown]
